FAERS Safety Report 10603879 (Version 1)
Quarter: 2014Q4

REPORT INFORMATION
  Report Type: Spontaneous
  Country: US (occurrence: US)
  Receive Date: 20141124
  Receipt Date: 20141124
  Transmission Date: 20150529
  Serious: No
  Sender: FDA-Public Use
  Company Number: US-SA-2014SA014556

PATIENT

DRUGS (2)
  1. RENVELA [Suspect]
     Active Substance: SEVELAMER CARBONATE
     Indication: PRODUCT USED FOR UNKNOWN INDICATION
     Dosage: 3 W/MEALS AND 2 W/ SNACKS, CALCIUM ACE 3 W /MEALS AND 2 W/ SNACKS
     Route: 065
  2. CALCIUM [Concomitant]
     Active Substance: CALCIUM
     Dosage: 3 WITH MEALS AND 2 WITH SNACKS

REACTIONS (1)
  - Constipation [Not Recovered/Not Resolved]
